FAERS Safety Report 4964024-8 (Version None)
Quarter: 2006Q1

REPORT INFORMATION
  Report Type: 
  Country: None (occurrence: None)
  Receive Date: 20060330
  Receipt Date: 20060321
  Transmission Date: 20060701
  Serious: Yes (Other)
  Sender: FDA-Public Use
  Company Number: US017159

PATIENT

DRUGS (1)
  1. PROVIGIL [Suspect]

REACTIONS (1)
  - RESPIRATORY ARREST [None]
